FAERS Safety Report 7645051 (Version 3)
Quarter: 2013Q2

REPORT INFORMATION
  Report Type: Report from Study
  Country: ES (occurrence: ES)
  Receive Date: 20101028
  Receipt Date: 20130405
  Transmission Date: 20140414
  Serious: Yes (Other)
  Sender: FDA-Public Use
  Company Number: ES-AMGEN-KDC388859

PATIENT
  Age: 69 Year
  Sex: Male

DRUGS (2)
  1. DENOSUMAB [Suspect]
     Indication: PROSTATE CANCER
     Dosage: UNK UNK, Q4WK
     Route: 058
     Dates: start: 20070323, end: 20090731
  2. DOCETAXEL [Concomitant]
     Dosage: UNK UNK, UNK
     Dates: start: 200706

REACTIONS (1)
  - Osteonecrosis of jaw [Recovered/Resolved]
